FAERS Safety Report 22322505 (Version 1)
Quarter: 2023Q2

REPORT INFORMATION
  Report Type: Spontaneous
  Country: US (occurrence: US)
  Receive Date: 20230516
  Receipt Date: 20230516
  Transmission Date: 20230722
  Serious: No
  Sender: FDA-Public Use
  Company Number: US-ARCUTIS BIOTHERAPEUTICS INC-2023AER000007

PATIENT

DRUGS (2)
  1. ZORYVE [Suspect]
     Active Substance: ROFLUMILAST
     Indication: Psoriasis
     Dosage: 0.3 % UNK
     Route: 061
  2. CIMZIA [Concomitant]
     Active Substance: CERTOLIZUMAB PEGOL
     Indication: Psoriasis
     Dosage: UNK, EVERY 2 WEEKS

REACTIONS (1)
  - Therapeutic product effect incomplete [Unknown]
